FAERS Safety Report 6810101-6 (Version None)
Quarter: 2010Q2

REPORT INFORMATION
  Report Type: 
  Country: None (occurrence: None)
  Receive Date: 20100630
  Receipt Date: 20100622
  Transmission Date: 20101027
  Serious: Yes (Hospitalization)
  Sender: FDA-Public Use
  Company Number: TR-WATSON-2010-08500

PATIENT
  Age: 17 Year
  Sex: Male

DRUGS (2)
  1. PROPAFENONE (WATSON LABORATORIES) [Suspect]
     Indication: SUICIDE ATTEMPT
     Dosage: 6000 MG, SINGLE
     Route: 048
  2. SULFAMETHOXAZOLE/TRIMETHOPRIM 400/80 (WATSON LABORATORIES) [Suspect]
     Indication: SUICIDE ATTEMPT
     Dosage: 9600 MG/1920 MG, SINGLE (24 TABLETS)
     Route: 048

REACTIONS (8)
  - ACIDOSIS [None]
  - BRADYCARDIA [None]
  - CARDIO-RESPIRATORY ARREST [None]
  - COMA [None]
  - HYPOTENSION [None]
  - MULTIPLE DRUG OVERDOSE INTENTIONAL [None]
  - SUICIDE ATTEMPT [None]
  - VENTRICULAR ARRHYTHMIA [None]
